FAERS Safety Report 5631129-8 (Version None)
Quarter: 2008Q1

REPORT INFORMATION
  Report Type: 
  Country: None (occurrence: None)
  Receive Date: 20080219
  Receipt Date: 20080206
  Transmission Date: 20080703
  Serious: Yes (Hospitalization)
  Sender: FDA-Public Use
  Company Number: JP-BOEHRINGER INGELHEIM GMBH, GERMANY-2007-BP-03444NB

PATIENT
  Sex: Female
  Weight: 66 kg

DRUGS (5)
  1. BI-SIFROL TABLETS [Suspect]
     Indication: PARKINSON'S DISEASE
     Route: 048
     Dates: start: 20050425, end: 20061120
  2. CARBIDOPA AND LEVODOPA [Concomitant]
     Indication: PARKINSON'S DISEASE
     Route: 048
     Dates: start: 20040922
  3. ARTANE [Concomitant]
     Indication: PARKINSON'S DISEASE
     Route: 048
     Dates: start: 20040623
  4. MEVALOTIN [Concomitant]
     Indication: HYPERLIPIDAEMIA
     Route: 048
     Dates: start: 20040623
  5. RHYTHMY (RILMAZAFONE HYDROCHLORIDE) [Concomitant]
     Indication: INSOMNIA
     Route: 048
     Dates: start: 20050425

REACTIONS (2)
  - OEDEMA PERIPHERAL [None]
  - SCOLIOSIS [None]
